FAERS Safety Report 11511462 (Version 1)
Quarter: 2015Q3

REPORT INFORMATION
  Report Type: Spontaneous
  Country: IN (occurrence: IN)
  Receive Date: 20150915
  Receipt Date: 20150915
  Transmission Date: 20151125
  Serious: Yes (Hospitalization, Other)
  Sender: FDA-Public Use
  Company Number: IN-AMEDRA PHARMACEUTICALS LLC-2015AMD00191

PATIENT
  Age: 29 Year
  Sex: Female

DRUGS (1)
  1. HYDROCORTISONE. [Suspect]
     Active Substance: HYDROCORTISONE
     Indication: PLANTAR FASCIITIS
     Dosage: UNK, ONCE
     Dates: start: 201108, end: 201108

REACTIONS (3)
  - Injection site pain [None]
  - Compartment syndrome [Recovered/Resolved]
  - Staphylococcus test positive [Recovered/Resolved]

NARRATIVE: CASE EVENT DATE: 2011
